FAERS Safety Report 20766517 (Version 2)
Quarter: 2022Q2

REPORT INFORMATION
  Report Type: Report from Study
  Country: SE (occurrence: SE)
  Receive Date: 20220428
  Receipt Date: 20220510
  Transmission Date: 20220721
  Serious: Yes (Death)
  Sender: FDA-Public Use
  Company Number: SE-ABBVIE-22K-150-4374614-00

PATIENT
  Sex: Male

DRUGS (2)
  1. CARBIDOPA\LEVODOPA [Suspect]
     Active Substance: CARBIDOPA\LEVODOPA
     Indication: Parkinson^s disease
     Dosage: THERAPY DURATION: REMAINED AT 16H?20 MG/ML 5 MG/ML
     Route: 050
     Dates: start: 20190214
  2. CARBIDOPA\LEVODOPA [Suspect]
     Active Substance: CARBIDOPA\LEVODOPA

REACTIONS (3)
  - Parkinson^s disease [Fatal]
  - Death [Fatal]
  - Unevaluable event [Fatal]
